FAERS Safety Report 7354138-X (Version None)
Quarter: 2011Q1

REPORT INFORMATION
  Report Type: 
  Country: None (occurrence: None)
  Receive Date: 20110315
  Receipt Date: 20110311
  Transmission Date: 20110831
  Serious: Yes (Other)
  Sender: FDA-Public Use
  Company Number: US-BRISTOL-MYERS SQUIBB COMPANY-15603350

PATIENT
  Age: 41 Year
  Sex: Female

DRUGS (1)
  1. ABILIFY [Suspect]
     Dosage: ABILIFY 1 MG :4 DAYS INCREASED TO 2MG.ABILIFY 5 MG MAY10,ABILIFY 7.5 MG IN JUNE 2010
     Route: 048
     Dates: start: 20100401, end: 20110303

REACTIONS (1)
  - MULTIPLE SCLEROSIS RELAPSE [None]
